FAERS Safety Report 10461713 (Version 1)
Quarter: 2014Q3

REPORT INFORMATION
  Report Type: Spontaneous
  Country: US (occurrence: None)
  Receive Date: 20140917
  Receipt Date: 20140917
  Transmission Date: 20150326
  Serious: Yes (Hospitalization)
  Sender: FDA-Public Use
  Company Number: None

PATIENT
  Age: 65 Year
  Sex: Male
  Weight: 92.6 kg

DRUGS (2)
  1. OXYCODONE [Suspect]
     Active Substance: OXYCODONE
     Indication: PAIN
     Route: 048
     Dates: start: 20060601, end: 20140814
  2. METHADONE [Suspect]
     Active Substance: METHADONE HYDROCHLORIDE
     Indication: PAIN
     Route: 048
     Dates: start: 20090608, end: 20140814

REACTIONS (5)
  - Abnormal behaviour [None]
  - Sedation [None]
  - Respiratory depression [None]
  - Extra dose administered [None]
  - Respiratory acidosis [None]

NARRATIVE: CASE EVENT DATE: 20140814
